FAERS Safety Report 8187334-2 (Version None)
Quarter: 2012Q1

REPORT INFORMATION
  Report Type: 
  Country: None (occurrence: None)
  Receive Date: 20120306
  Receipt Date: 20120221
  Transmission Date: 20120608
  Serious: Yes (Other)
  Sender: FDA-Public Use
  Company Number: AU-ROCHE-1042398

PATIENT
  Age: 52 Year
  Sex: Female

DRUGS (4)
  1. HYDROXYCHLOROQUINE SULFATE [Concomitant]
  2. MABTHERA [Suspect]
     Indication: RHEUMATOID ARTHRITIS
  3. HERCEPTIN [Suspect]
     Indication: BREAST CANCER
  4. PRED [Concomitant]

REACTIONS (4)
  - PANCYTOPENIA [None]
  - SYNOVITIS [None]
  - LYMPHOCYTE COUNT DECREASED [None]
  - JOINT DESTRUCTION [None]
